FAERS Safety Report 11872263 (Version 1)
Quarter: 2015Q4

REPORT INFORMATION
  Report Type: Spontaneous
  Country: US (occurrence: US)
  Receive Date: 20151228
  Receipt Date: 20151228
  Transmission Date: 20160305
  Serious: Yes (Hospitalization)
  Sender: FDA-Public Use
  Company Number: US-ENDO PHARMACEUTICALS INC.-2015-001327

PATIENT
  Age: 48 Year
  Sex: Female
  Weight: 79.9 kg

DRUGS (2)
  1. ALLOPURINOL TABLETS 300MG [Suspect]
     Active Substance: ALLOPURINOL
     Indication: GOUT
     Route: 065
     Dates: start: 201412, end: 201412
  2. ANTIHYPERTENSIVE [Concomitant]
     Active Substance: UNSPECIFIED INGREDIENT
     Indication: HYPERTENSION
     Route: 065

REACTIONS (17)
  - Swelling face [Unknown]
  - Condition aggravated [Not Recovered/Not Resolved]
  - Skin exfoliation [Unknown]
  - Renal impairment [Not Recovered/Not Resolved]
  - Feeling abnormal [Unknown]
  - Surgery [Recovered/Resolved]
  - Emotional distress [Not Recovered/Not Resolved]
  - Dyspnoea [Unknown]
  - Hypersensitivity [Unknown]
  - Rash pruritic [Unknown]
  - Peripheral swelling [Unknown]
  - Rash erythematous [Unknown]
  - Decreased appetite [Not Recovered/Not Resolved]
  - Pyrexia [Unknown]
  - Pulmonary function test abnormal [Unknown]
  - Eating disorder [Unknown]
  - Weight decreased [Not Recovered/Not Resolved]

NARRATIVE: CASE EVENT DATE: 201412
